FAERS Safety Report 10430458 (Version 1)
Quarter: 2014Q3

REPORT INFORMATION
  Report Type: Spontaneous
  Country: US (occurrence: None)
  Receive Date: 20140813
  Receipt Date: 20140813
  Transmission Date: 20150326
  Serious: Yes (Hospitalization)
  Sender: FDA-Public Use
  Company Number: 2014SE10738

PATIENT
  Age: 6 Month
  Sex: Female
  Weight: 9.8 kg

DRUGS (6)
  1. SYNAGIS [Suspect]
     Active Substance: PALIVIZUMAB
     Indication: ANTIVIRAL PROPHYLAXIS
     Route: 030
     Dates: start: 20140102
  2. SPIRONOLACTONE. [Concomitant]
     Active Substance: SPIRONOLACTONE
  3. OXYGEN. [Concomitant]
     Active Substance: OXYGEN
  4. PREVACID [Concomitant]
     Active Substance: LANSOPRAZOLE
  5. SOLUCORT (PREDNISOLONE) [Concomitant]
  6. DIURIL (CHLOROTHIAZIDE) [Concomitant]

REACTIONS (1)
  - Respiratory syncytial virus infection [None]

NARRATIVE: CASE EVENT DATE: 20140212
